FAERS Safety Report 12898874 (Version 1)
Quarter: 2016Q4

REPORT INFORMATION
  Report Type: Spontaneous
  Country: GB (occurrence: GB)
  Receive Date: 20161101
  Receipt Date: 20161101
  Transmission Date: 20170207
  Serious: Yes (Other)
  Sender: FDA-Public Use
  Company Number: GB-AUROBINDO-AUR-APL-2016-13258

PATIENT
  Age: 82 Year
  Sex: Male
  Weight: 107.95 kg

DRUGS (1)
  1. TRAMADOL 50MG [Suspect]
     Active Substance: TRAMADOL
     Indication: ANALGESIC THERAPY
     Dosage: 50 MG, TWO TIMES A DAY
     Route: 048
     Dates: start: 20161006, end: 20161006

REACTIONS (1)
  - Insomnia [Not Recovered/Not Resolved]

NARRATIVE: CASE EVENT DATE: 20161006
